FAERS Safety Report 19473455 (Version 1)
Quarter: 2021Q2

REPORT INFORMATION
  Report Type: Report from Study
  Country: US (occurrence: US)
  Receive Date: 20210629
  Receipt Date: 20210629
  Transmission Date: 20210717
  Serious: Yes (Hospitalization)
  Sender: FDA-Public Use
  Company Number: US-GILEAD-2021-0538161

PATIENT
  Age: 68 Year
  Sex: Female
  Weight: 59 kg

DRUGS (24)
  1. AXICABTAGENE CILOLEUCEL [Suspect]
     Active Substance: AXICABTAGENE CILOLEUCEL
     Indication: NON-HODGKIN^S LYMPHOMA UNSPECIFIED HISTOLOGY INDOLENT
     Dosage: 68 ML, ONCE
     Route: 042
     Dates: start: 20190415, end: 20190415
  2. MONISTAT [Concomitant]
     Active Substance: MICONAZOLE NITRATE
     Dosage: UNK
     Route: 067
     Dates: start: 20210325, end: 20210329
  3. CEPHALEXIN [CEFALEXIN] [Concomitant]
     Active Substance: CEPHALEXIN
     Dosage: 500,MG,FOUR TIMES DAILY
     Route: 048
     Dates: start: 20210401, end: 20210407
  4. COTRIMOXAZOLE [Concomitant]
     Active Substance: SULFAMETHOXAZOLE\TRIMETHOPRIM
     Dosage: 800/160,MG,DAILY
     Route: 048
     Dates: start: 20210419, end: 20210423
  5. FLUCONAZOLE. [Concomitant]
     Active Substance: FLUCONAZOLE
     Dosage: 150,MG,DAILY
     Route: 048
     Dates: start: 20210324, end: 20210326
  6. CYCLOPHOSPHAMIDE. [Suspect]
     Active Substance: CYCLOPHOSPHAMIDE
     Indication: BONE MARROW CONDITIONING REGIMEN
     Dosage: ^500^, QD
     Route: 042
     Dates: start: 20190410, end: 20190412
  7. PIPERACILLIN/TAZOBACTAM [Concomitant]
     Active Substance: PIPERACILLIN SODIUM\TAZOBACTAM SODIUM
     Dosage: 3.375,G,THREE TIMES DAILY
     Route: 041
     Dates: start: 20210424, end: 20210424
  8. VANCOMYCIN [Concomitant]
     Active Substance: VANCOMYCIN
     Dosage: 750,MG,OTHER
     Route: 041
     Dates: start: 20210521, end: 20210521
  9. PIPERACILLIN/TAZOBACTAM [Concomitant]
     Active Substance: PIPERACILLIN SODIUM\TAZOBACTAM SODIUM
     Dosage: 3.375,G,TWICE DAILY
     Route: 041
     Dates: start: 20210423, end: 20210423
  10. VANCOMYCIN [Concomitant]
     Active Substance: VANCOMYCIN
     Dosage: 1,G,OTHER
     Route: 041
     Dates: start: 20210419, end: 20210419
  11. VANCOMYCIN [Concomitant]
     Active Substance: VANCOMYCIN
     Dosage: 750,MG,EVERY 12 HOURS
     Route: 041
     Dates: start: 20210520, end: 20210521
  12. VANCOMYCIN [Concomitant]
     Active Substance: VANCOMYCIN
     Dosage: 750,MG,EVERY 12 HOURS
     Route: 041
     Dates: start: 20210423, end: 20210425
  13. VANCOMYCIN [Concomitant]
     Active Substance: VANCOMYCIN
     Dosage: 1,G,EVERY 12 HOURS
     Route: 041
     Dates: start: 20210425, end: 20210425
  14. VANCOMYCIN [Concomitant]
     Active Substance: VANCOMYCIN
     Dosage: 750,MG,EVERY 12 HOURS
     Route: 041
     Dates: start: 20210426, end: 20210503
  15. METRONIDAZOLE. [Concomitant]
     Active Substance: METRONIDAZOLE
     Dosage: 500,MG,THREE TIMES DAILY
     Route: 048
     Dates: start: 20210428, end: 20210504
  16. COTRIMOXAZOLE [Concomitant]
     Active Substance: SULFAMETHOXAZOLE\TRIMETHOPRIM
     Dosage: 800/160,MG,DAILY
     Route: 048
     Dates: start: 20210511, end: 20210512
  17. MESNA. [Suspect]
     Active Substance: MESNA
     Indication: PROPHYLAXIS
     Dosage: ^810^, QD
     Route: 042
     Dates: start: 20190410, end: 20190412
  18. FLUCONAZOLE. [Concomitant]
     Active Substance: FLUCONAZOLE
     Dosage: 150,MG,OTHER
     Route: 048
     Dates: start: 20210513, end: 20210513
  19. METRONIDAZOLE. [Concomitant]
     Active Substance: METRONIDAZOLE
     Dosage: 500,MG,THREE TIMES DAILY
     Route: 048
     Dates: start: 20210419, end: 20210423
  20. FLUDARABINE [Suspect]
     Active Substance: FLUDARABINE PHOSPHATE
     Indication: BONE MARROW CONDITIONING REGIMEN
     Dosage: ^30^, QD
     Route: 042
     Dates: start: 20190410, end: 20210412
  21. AQUAPHOR [WHITE SOFT PARAFFIN] [Concomitant]
     Dosage: 10,MG,AS NECESSARY
     Route: 061
     Dates: start: 20190611
  22. PIPERACILLIN/TAZOBACTAM [Concomitant]
     Active Substance: PIPERACILLIN SODIUM\TAZOBACTAM SODIUM
     Dosage: 3.375,G,OTHER
     Route: 041
     Dates: start: 20210419, end: 20210419
  23. PIPERACILLIN/TAZOBACTAM [Concomitant]
     Active Substance: PIPERACILLIN SODIUM\TAZOBACTAM SODIUM
     Dosage: 3.375,G,TWICE DAILY
     Route: 041
     Dates: start: 20210425, end: 20210425
  24. VANCOMYCIN [Concomitant]
     Active Substance: VANCOMYCIN
     Dosage: 1,G,OTHER
     Route: 041
     Dates: start: 20210519, end: 20210519

REACTIONS (1)
  - Cellulitis [Not Recovered/Not Resolved]

NARRATIVE: CASE EVENT DATE: 20210423
